FAERS Safety Report 16752127 (Version 1)
Quarter: 2019Q3

REPORT INFORMATION
  Report Type: Spontaneous
  Country: US (occurrence: US)
  Receive Date: 20190828
  Receipt Date: 20190828
  Transmission Date: 20191005
  Serious: No
  Sender: FDA-Public Use
  Company Number: US-BAYER-2019-156658

PATIENT
  Age: 69 Year
  Sex: Male

DRUGS (5)
  1. VITAMINS NOS [Concomitant]
     Active Substance: VITAMINS
  2. VITAMIN D [VITAMIN D NOS] [Concomitant]
     Active Substance: VITAMIN D NOS
  3. SLEEP AID [MELATONIN] [Concomitant]
  4. ALEVE PM [Suspect]
     Active Substance: DIPHENHYDRAMINE HYDROCHLORIDE\NAPROXEN SODIUM
     Indication: SLEEP DISORDER THERAPY
     Dosage: 1 1/2 OR 2, QOD
     Route: 048
  5. BAYER LOW DOSE [Interacting]
     Active Substance: ASPIRIN

REACTIONS (4)
  - Dysgeusia [Unknown]
  - Labelled drug-drug interaction medication error [None]
  - Product use in unapproved indication [None]
  - Haemoptysis [Unknown]

NARRATIVE: CASE EVENT DATE: 20190824
